FAERS Safety Report 16316660 (Version 3)
Quarter: 2019Q2

REPORT INFORMATION
  Report Type: Spontaneous
  Country: PL (occurrence: PL)
  Receive Date: 20190515
  Receipt Date: 20190607
  Transmission Date: 20190711
  Serious: Yes (Hospitalization)
  Sender: FDA-Public Use
  Company Number: PHHY2019PL105232

PATIENT
  Age: 33 Year
  Sex: Female

DRUGS (10)
  1. MAGNESIUM [Suspect]
     Active Substance: MAGNESIUM
     Indication: SPINAL PAIN
  2. MAGNESIUM [Suspect]
     Active Substance: MAGNESIUM
     Indication: ARTHRALGIA
     Route: 065
  3. MAGNESIUM [Suspect]
     Active Substance: MAGNESIUM
     Indication: ABDOMINAL PAIN LOWER
  4. DROTAVERINE [Suspect]
     Active Substance: DROTAVERINE
     Indication: SPINAL PAIN
  5. PARACETAMOL [Suspect]
     Active Substance: ACETAMINOPHEN
     Indication: SPINAL PAIN
  6. DROTAVERINE [Suspect]
     Active Substance: DROTAVERINE
     Indication: ARTHRALGIA
     Route: 065
  7. DROTAVERINE [Suspect]
     Active Substance: DROTAVERINE
     Indication: ABDOMINAL PAIN LOWER
  8. DROTAVERINE [Suspect]
     Active Substance: DROTAVERINE
     Indication: PAIN
  9. PARACETAMOL [Suspect]
     Active Substance: ACETAMINOPHEN
     Indication: ARTHRALGIA
     Route: 065
  10. PARACETAMOL [Suspect]
     Active Substance: ACETAMINOPHEN
     Indication: ABDOMINAL PAIN LOWER

REACTIONS (6)
  - Drug ineffective [Unknown]
  - Premature delivery [Unknown]
  - Premature rupture of membranes [Unknown]
  - Maternal exposure during pregnancy [Unknown]
  - Exposure during pregnancy [Recovered/Resolved]
  - Premature labour [Unknown]
